FAERS Safety Report 9342257 (Version 2)
Quarter: 2013Q2

REPORT INFORMATION
  Report Type: Spontaneous
  Country: IN (occurrence: IN)
  Receive Date: 20130611
  Receipt Date: 20130618
  Transmission Date: 20140414
  Serious: Yes (Congenital Anomaly)
  Sender: FDA-Public Use
  Company Number: IN-ABBOTT-13X-078-1102689-00

PATIENT
  Sex: 0

DRUGS (1)
  1. VALPROATE SODIUM [Suspect]
     Indication: MATERNAL EXPOSURE TIMING UNSPECIFIED
     Route: 064

REACTIONS (12)
  - Foetal anticonvulsant syndrome [Unknown]
  - Limb malformation [Unknown]
  - Low set ears [Unknown]
  - Congenital nose malformation [Unknown]
  - Dysmorphism [Unknown]
  - Congenital oral malformation [Unknown]
  - Hypospadias [Unknown]
  - Developmental delay [Unknown]
  - Low birth weight baby [Unknown]
  - Spina bifida [Unknown]
  - Lip disorder [Unknown]
  - Foetal exposure during pregnancy [Unknown]
